FAERS Safety Report 4877986-4 (Version None)
Quarter: 2005Q4

REPORT INFORMATION
  Report Type: 
  Country: None (occurrence: None)
  Receive Date: 20051206
  Receipt Date: 20050907
  Transmission Date: 20060501
  Serious: No
  Sender: FDA-Public Use
  Company Number: USA0509107532

PATIENT
  Age: 57 Year
  Sex: Female

DRUGS (2)
  1. CYMBALTA [Suspect]
     Indication: NERVE INJURY
     Dosage: 30 MG DAY
     Dates: start: 20050701, end: 20050831
  2. NITROFURANTOIN [Concomitant]

REACTIONS (6)
  - ABNORMAL DREAMS [None]
  - CHEST DISCOMFORT [None]
  - COUGH [None]
  - DYSPHONIA [None]
  - INSOMNIA [None]
  - URTICARIA [None]
